FAERS Safety Report 25951375 (Version 2)
Quarter: 2025Q4

REPORT INFORMATION
  Report Type: Spontaneous
  Country: AU (occurrence: AU)
  Receive Date: 20251023
  Receipt Date: 20251125
  Transmission Date: 20260118
  Serious: Yes (Other)
  Sender: ACCORD
  Company Number: AU-Accord-509091

PATIENT
  Age: 43 Year
  Sex: Female

DRUGS (9)
  1. LEVOTHYROXINE [Suspect]
     Active Substance: LEVOTHYROXINE
     Indication: Product used for unknown indication
     Dosage: QD, MANE?STRENGTH: 75 MCG
  2. FLUOXETINE [Suspect]
     Active Substance: FLUOXETINE HYDROCHLORIDE
     Indication: Product used for unknown indication
     Dosage: 40 MG, MANE
  3. CLOZAPINE [Suspect]
     Active Substance: CLOZAPINE
     Indication: Product used for unknown indication
     Dosage: STRENGTH: 100 MG, 100 TABLET, 300 MG, NOCTE
     Dates: start: 2009
  4. METFORMIN [Suspect]
     Active Substance: METFORMIN HYDROCHLORIDE
     Indication: Product used for unknown indication
     Dosage: 250 MG MANE, 500 MG NOCTE
  5. VITAMIN D [Suspect]
     Active Substance: VITAMIN D NOS
     Indication: Product used for unknown indication
     Dosage: ONE TABLET MANE
  6. DOCUSATE SODIUM\SENNOSIDE B [Suspect]
     Active Substance: DOCUSATE SODIUM\SENNOSIDE B
     Indication: Product used for unknown indication
     Dosage: TWO TABLETS NOCTE
  7. ASCORBIC ACID\FERROUS SULFATE [Suspect]
     Active Substance: ASCORBIC ACID\FERROUS SULFATE
     Indication: Product used for unknown indication
     Dosage: MORNING
  8. MOVICOL [Suspect]
     Active Substance: POLYETHYLENE GLYCOL 3350\POTASSIUM CHLORIDE\SODIUM BICARBONATE\SODIUM CHLORIDE
     Indication: Product used for unknown indication
     Dosage: PRN, ONE TO TWO SACHETS PO BD
     Route: 048
  9. COLLAGEN [Suspect]
     Active Substance: COLLAGEN
     Indication: Product used for unknown indication
     Dosage: SELF MEDICATED

REACTIONS (3)
  - Hallucination, auditory [Unknown]
  - Dyspnoea exertional [Unknown]
  - Dizziness [Unknown]
